FAERS Safety Report 9396228 (Version 1)
Quarter: 2013Q3

REPORT INFORMATION
  Report Type: Spontaneous
  Country: US (occurrence: US)
  Receive Date: 20130711
  Receipt Date: 20130711
  Transmission Date: 20140515
  Serious: Yes (Other)
  Sender: FDA-Public Use
  Company Number: US-PFIZER INC-2013203195

PATIENT
  Age: 76 Year
  Sex: Female
  Weight: 95.24 kg

DRUGS (2)
  1. ADVIL [Suspect]
     Indication: BACK PAIN
     Dosage: UNK
     Dates: start: 201301, end: 201301
  2. VICODIN [Suspect]
     Indication: BACK PAIN
     Dosage: UNK
     Dates: start: 201301, end: 201301

REACTIONS (3)
  - Abasia [Recovered/Resolved]
  - Drug ineffective [Unknown]
  - Hypertonic bladder [Recovered/Resolved]
